FAERS Safety Report 10167891 (Version 1)
Quarter: 2014Q2

REPORT INFORMATION
  Report Type: Spontaneous
  Country: US (occurrence: US)
  Receive Date: 20140512
  Receipt Date: 20140512
  Transmission Date: 20141212
  Serious: Yes (Death)
  Sender: FDA-Public Use
  Company Number: US-INCYTE CORPORATION-2014IN001218

PATIENT
  Sex: Female

DRUGS (11)
  1. JAKAFI [Suspect]
     Dosage: 10 MG, BID
     Route: 048
     Dates: start: 20130318
  2. LASIX                              /00032601/ [Concomitant]
  3. NYSTATIN [Concomitant]
  4. NEXIUM                             /01479302/ [Concomitant]
  5. LEVAQUIN [Concomitant]
  6. ZOCOR [Concomitant]
  7. ALLOPURINOL [Concomitant]
  8. DIGOXIN [Concomitant]
  9. COUMADIN                           /00014802/ [Concomitant]
  10. SYNTHROID [Concomitant]
  11. KLOR-CON [Concomitant]

REACTIONS (1)
  - Death [Fatal]
